FAERS Safety Report 10090824 (Version 3)
Quarter: 2014Q2

REPORT INFORMATION
  Report Type: Spontaneous
  Country: IN (occurrence: IN)
  Receive Date: 20140421
  Receipt Date: 20140506
  Transmission Date: 20141212
  Serious: Yes (Hospitalization)
  Sender: FDA-Public Use
  Company Number: PHHY2014IN045477

PATIENT
  Age: 32 Year
  Sex: Male

DRUGS (4)
  1. DIGOXIN [Suspect]
  2. PROPRANOLOL [Suspect]
  3. INSULIN [Suspect]
     Indication: TYPE 1 DIABETES MELLITUS
  4. INSULIN GLARGINE [Concomitant]
     Indication: TYPE 1 DIABETES MELLITUS
     Dosage: 30 U, DAILY

REACTIONS (3)
  - Suicidal ideation [Unknown]
  - Toxicity to various agents [Recovering/Resolving]
  - Overdose [Unknown]
